FAERS Safety Report 7294204-0 (Version None)
Quarter: 2011Q1

REPORT INFORMATION
  Report Type: 
  Country: None (occurrence: None)
  Receive Date: 20110215
  Receipt Date: 20110203
  Transmission Date: 20110831
  Serious: Yes (Hospitalization)
  Sender: FDA-Public Use
  Company Number: US-ELI_LILLY_AND_COMPANY-US201008006631

PATIENT
  Sex: Female

DRUGS (23)
  1. FORTEO [Suspect]
     Indication: OSTEOPOROSIS
     Dosage: 20 UG, DAILY (1/D)
     Route: 058
     Dates: start: 20090801
  2. LEVEMIR [Concomitant]
  3. ASPIRIN [Concomitant]
  4. COUMADIN [Concomitant]
  5. CRESTOR [Concomitant]
  6. CYMBALTA [Concomitant]
  7. SYMBICORT [Concomitant]
  8. PREDNISONE TAB [Concomitant]
     Indication: ASTHMA
  9. FORTEO [Suspect]
     Dosage: 20 UG, DAILY (1/D)
     Route: 058
     Dates: start: 20100721
  10. SINGULAIR [Concomitant]
  11. FORTEO [Suspect]
     Dosage: 20 UG, DAILY (1/D)
     Route: 058
  12. MOBIC [Concomitant]
  13. SYNTHROID [Concomitant]
  14. ALBUTEROL [Concomitant]
     Dosage: UNK, 2 - 3/D
  15. ALLEGRA [Concomitant]
  16. VITAMIN D [Concomitant]
  17. BENICAR [Concomitant]
  18. CARDIZEM [Concomitant]
  19. DIGOXIN [Concomitant]
  20. FUROSEMIDE [Concomitant]
  21. NEXIUM [Concomitant]
  22. CALCIUM [Concomitant]
  23. XOLAIR [Concomitant]
     Indication: HYPERSENSITIVITY
     Dosage: UNK, MONTHLY (1/M)

REACTIONS (4)
  - ASTHENIA [None]
  - ABDOMINAL PAIN [None]
  - INJECTION SITE PAIN [None]
  - ARTERIAL OCCLUSIVE DISEASE [None]
